FAERS Safety Report 11896261 (Version 1)
Quarter: 2016Q1

REPORT INFORMATION
  Report Type: Spontaneous
  Country: US (occurrence: US)
  Receive Date: 20160107
  Receipt Date: 20160107
  Transmission Date: 20160526
  Serious: No
  Sender: FDA-Public Use
  Company Number: US-ROCHE-1509311

PATIENT

DRUGS (7)
  1. ASPIRIN. [Concomitant]
     Active Substance: ASPIRIN
  2. IMURAN [Concomitant]
     Active Substance: AZATHIOPRINE
  3. ACTHAR [Suspect]
     Active Substance: CORTICOTROPIN
     Indication: DERMATOMYOSITIS
     Route: 065
  4. PREDNISOLONE. [Concomitant]
     Active Substance: PREDNISOLONE
  5. RITUXAN [Suspect]
     Active Substance: RITUXIMAB
     Indication: DERMATOMYOSITIS
     Route: 042
     Dates: start: 201404, end: 20141007
  6. BENADRYL [Concomitant]
     Active Substance: DIPHENHYDRAMINE HYDROCHLORIDE
  7. SOLU-MEDROL [Suspect]
     Active Substance: METHYLPREDNISOLONE SODIUM SUCCINATE
     Indication: PRODUCT USED FOR UNKNOWN INDICATION
     Route: 065

REACTIONS (24)
  - Retinal tear [Unknown]
  - Dysphonia [Unknown]
  - Muscular weakness [Unknown]
  - Fine motor skill dysfunction [Unknown]
  - Drug ineffective [Unknown]
  - Erythema [Unknown]
  - Feeling abnormal [Unknown]
  - Fall [Unknown]
  - Fatigue [Unknown]
  - Injection site pain [Unknown]
  - Gait disturbance [Unknown]
  - Feelings of worthlessness [Unknown]
  - Depressed mood [Unknown]
  - Balance disorder [Unknown]
  - Flushing [Unknown]
  - Aphasia [Unknown]
  - Asthenia [Unknown]
  - Myalgia [Unknown]
  - Pain in extremity [Unknown]
  - Pain [Unknown]
  - Frustration tolerance decreased [Unknown]
  - Arthralgia [Unknown]
  - Cognitive disorder [Unknown]
  - Blood creatine phosphokinase increased [Unknown]
